FAERS Safety Report 4437207-3 (Version None)
Quarter: 2004Q3

REPORT INFORMATION
  Report Type: 
  Country: None (occurrence: None)
  Receive Date: 20040726
  Receipt Date: 20040323
  Transmission Date: 20050211
  Serious: No
  Sender: FDA-Public Use
  Company Number: USA040360954

PATIENT
  Age: 62 Year
  Sex: Female
  Weight: 63 kg

DRUGS (6)
  1. EVISTA [Suspect]
     Indication: OSTEOPOROSIS
     Dates: start: 20020101
  2. FORTEO [Suspect]
     Indication: OSTEOPOROSIS
     Dates: start: 20040311
  3. SYNTHROID [Concomitant]
  4. ALLEGRA-D [Concomitant]
  5. MULTI-VITAMIN [Concomitant]
  6. CALCIUM AND VITAMIN D [Concomitant]

REACTIONS (7)
  - CONTUSION [None]
  - DIZZINESS [None]
  - HOT FLUSH [None]
  - INSOMNIA [None]
  - MEDICATION ERROR [None]
  - NAUSEA [None]
  - OVERDOSE [None]
